FAERS Safety Report 13380568 (Version 1)
Quarter: 2017Q1

REPORT INFORMATION
  Report Type: Other
  Country: US (occurrence: US)
  Receive Date: 20170329
  Receipt Date: 20170329
  Transmission Date: 20170429
  Serious: Yes (Hospitalization)
  Sender: FDA-Public Use
  Company Number: US-SHIRE-US201706522

PATIENT
  Age: 53 Year
  Sex: Female

DRUGS (1)
  1. GATTEX [Suspect]
     Active Substance: TEDUGLUTIDE\WATER
     Indication: CROHN^S DISEASE
     Dosage: 0.27 MG, 1X/DAY:QD
     Route: 058

REACTIONS (5)
  - Abdominal distension [Not Recovered/Not Resolved]
  - Off label use [Unknown]
  - Pain [Unknown]
  - Constipation [Recovering/Resolving]
  - Arthralgia [Not Recovered/Not Resolved]

NARRATIVE: CASE EVENT DATE: 201703
